FAERS Safety Report 13427372 (Version 1)
Quarter: 2017Q2

REPORT INFORMATION
  Report Type: Spontaneous
  Country: US (occurrence: US)
  Receive Date: 20170411
  Receipt Date: 20170411
  Transmission Date: 20170830
  Serious: No
  Sender: FDA-Public Use
  Company Number: US-GLAXOSMITHKLINE-US2017050307

PATIENT
  Sex: Female

DRUGS (1)
  1. NICODERM CQ [Suspect]
     Active Substance: NICOTINE
     Indication: SMOKING CESSATION THERAPY
     Dosage: UNK
     Dates: start: 20170331

REACTIONS (6)
  - Malaise [Unknown]
  - Palpitations [Unknown]
  - Nausea [Unknown]
  - Product selection error [Unknown]
  - Vomiting [Unknown]
  - Emergency care [Unknown]
